FAERS Safety Report 7810724-1 (Version None)
Quarter: 2011Q4

REPORT INFORMATION
  Report Type: 
  Country: None (occurrence: None)
  Receive Date: 20111006
  Receipt Date: 20110921
  Transmission Date: 20120403
  Serious: Yes (Other)
  Sender: FDA-Public Use
  Company Number: 2011EK000020

PATIENT
  Age: 56 Year
  Sex: Male

DRUGS (1)
  1. RETAVASE [Suspect]
     Indication: CEREBROVASCULAR ACCIDENT
     Dates: start: 20091112

REACTIONS (1)
  - WRONG DRUG ADMINISTERED [None]
